FAERS Safety Report 4691348-4 (Version None)
Quarter: 2005Q2

REPORT INFORMATION
  Report Type: 
  Country: None (occurrence: None)
  Receive Date: 20050610
  Receipt Date: 20050531
  Transmission Date: 20051028
  Serious: Yes (Other)
  Sender: FDA-Public Use
  Company Number: 2005081796

PATIENT
  Age: 73 Year
  Sex: Female

DRUGS (6)
  1. CELEBREX [Suspect]
     Indication: PAIN
     Dosage: 200 MG (200 MG, AS NECESSARY), ORAL
     Route: 048
  2. VERAPAMIL [Concomitant]
  3. TOPROL-XL [Concomitant]
  4. GLYBURIDE (GLYBENCLAMIDE) [Concomitant]
  5. ACTOS [Concomitant]
  6. PREVAICD LANSOPRAZOLE) [Concomitant]

REACTIONS (1)
  - CARDIAC VALVE DISEASE [None]
